FAERS Safety Report 5155873-4 (Version None)
Quarter: 2006Q4

REPORT INFORMATION
  Report Type: 
  Country: None (occurrence: None)
  Receive Date: 20061122
  Receipt Date: 20061114
  Transmission Date: 20070319
  Serious: Yes (Other)
  Sender: FDA-Public Use
  Company Number: US-JNJFOC-20061103663

PATIENT
  Sex: Male

DRUGS (2)
  1. TYLENOL [Suspect]
     Indication: BACK PAIN
  2. TYLENOL [Suspect]
     Indication: HEADACHE

REACTIONS (3)
  - ABDOMINAL PAIN UPPER [None]
  - CONSTIPATION [None]
  - RECTAL HAEMORRHAGE [None]
